FAERS Safety Report 9210635 (Version 1)
Quarter: 2013Q2

REPORT INFORMATION
  Report Type: Spontaneous
  Country: US (occurrence: US)
  Receive Date: 20130404
  Receipt Date: 20130404
  Transmission Date: 20140414
  Serious: No
  Sender: FDA-Public Use
  Company Number: US-PFIZER INC-2013104793

PATIENT
  Age: 70 Year
  Sex: Female
  Weight: 61.2 kg

DRUGS (9)
  1. ADVIL [Suspect]
     Indication: NASOPHARYNGITIS
     Dosage: 400 MG (TWO 200MG), THREE TIMES A DAY
     Route: 048
     Dates: start: 20130331, end: 20130401
  2. ADVIL [Suspect]
     Indication: HEADACHE
  3. PROZAC [Concomitant]
     Indication: HYPERSENSITIVITY
     Dosage: UNK
  4. ALLEGRA [Concomitant]
     Indication: HYPERSENSITIVITY
     Dosage: UNK
  5. TRIAMTERENE [Concomitant]
     Indication: HYPERTENSION
     Dosage: UNK
  6. CRESTOR [Concomitant]
     Indication: BLOOD CHOLESTEROL INCREASED
     Dosage: UNK
  7. ZETIA [Concomitant]
     Indication: BLOOD CHOLESTEROL INCREASED
     Dosage: UNK
  8. MUCINEX D [Concomitant]
     Dosage: UNK
  9. PRILOSEC [Concomitant]
     Dosage: UNK

REACTIONS (2)
  - Expired drug administered [Unknown]
  - Diarrhoea [Not Recovered/Not Resolved]
